FAERS Safety Report 8365076-8 (Version None)
Quarter: 2012Q2

REPORT INFORMATION
  Report Type: 
  Country: None (occurrence: None)
  Receive Date: 20120516
  Receipt Date: 20120508
  Transmission Date: 20120825
  Serious: Yes (Hospitalization, Other)
  Sender: FDA-Public Use
  Company Number: US-ASTRAZENECA-2012SE29614

PATIENT
  Age: 51 Year
  Sex: Male
  Weight: 103 kg

DRUGS (7)
  1. ALBUTEROL [Concomitant]
  2. NEXIUM [Suspect]
     Indication: GASTROOESOPHAGEAL REFLUX DISEASE
     Route: 048
  3. COMBIVENT [Concomitant]
  4. ZOMAX [Concomitant]
     Indication: NEPHROLITHIASIS
  5. TERAZOSIN HCL [Concomitant]
     Indication: PROSTATIC DISORDER
  6. FLOVENT [Concomitant]
     Dosage: AS REQUIRED
  7. ADVAIR DISKUS 100/50 [Concomitant]
     Dosage: AS REQUIRED

REACTIONS (7)
  - ABDOMINAL DISTENSION [None]
  - WEIGHT INCREASED [None]
  - CHRONIC OBSTRUCTIVE PULMONARY DISEASE [None]
  - HERPES ZOSTER [None]
  - ABDOMINAL PAIN UPPER [None]
  - PNEUMONIA [None]
  - TRANSIENT ISCHAEMIC ATTACK [None]
